FAERS Safety Report 6911455-2 (Version None)
Quarter: 2010Q3

REPORT INFORMATION
  Report Type: 
  Country: None (occurrence: None)
  Receive Date: 20100806
  Receipt Date: 20100730
  Transmission Date: 20110219
  Serious: Yes (Other)
  Sender: FDA-Public Use
  Company Number: FR-JNJFOC-20100406365

PATIENT
  Sex: Female

DRUGS (5)
  1. REMINYL LP [Suspect]
     Indication: PRODUCT USED FOR UNKNOWN INDICATION
     Route: 048
  2. REQUIP [Suspect]
     Indication: PARKINSON'S DISEASE
     Route: 048
  3. REQUIP [Suspect]
     Route: 048
  4. REQUIP [Suspect]
     Route: 048
  5. MODOPAR [Concomitant]
     Indication: PARKINSON'S DISEASE
     Route: 065

REACTIONS (4)
  - DRUG DISPENSING ERROR [None]
  - MALAISE [None]
  - PALPITATIONS [None]
  - TREMOR [None]
